FAERS Safety Report 8334902-0 (Version None)
Quarter: 2012Q2

REPORT INFORMATION
  Report Type: 
  Country: None (occurrence: None)
  Receive Date: 20120503
  Receipt Date: 20120427
  Transmission Date: 20120825
  Serious: Yes (Other)
  Sender: FDA-Public Use
  Company Number: US-JNJFOC-20120407791

PATIENT
  Sex: Female
  Weight: 65.77 kg

DRUGS (7)
  1. XARELTO [Suspect]
     Indication: THROMBOSIS PROPHYLAXIS
     Route: 048
     Dates: start: 20120323
  2. XARELTO [Suspect]
     Indication: KNEE ARTHROPLASTY
     Route: 048
     Dates: start: 20120323
  3. PREDNISONE TAB [Concomitant]
  4. ASPIRIN [Concomitant]
     Indication: ANTIPLATELET THERAPY
     Dates: end: 20120310
  5. XARELTO [Suspect]
     Route: 048
     Dates: start: 20120321
  6. PLAQUENIL [Concomitant]
  7. XARELTO [Suspect]
     Route: 048
     Dates: start: 20120321

REACTIONS (1)
  - WOUND DRAINAGE [None]
